FAERS Safety Report 9774670 (Version 1)
Quarter: 2013Q4

REPORT INFORMATION
  Report Type: Report from Study
  Country: FR (occurrence: FR)
  Receive Date: 20131220
  Receipt Date: 20131220
  Transmission Date: 20140711
  Serious: Yes (Death, Hospitalization)
  Sender: FDA-Public Use
  Company Number: FR-BAYER-2013-152893

PATIENT
  Age: 85 Year
  Sex: Male
  Weight: 70 kg

DRUGS (2)
  1. REGORAFENIB [Suspect]
     Indication: COLON CANCER METASTATIC
     Dosage: 160 MG, UNK
     Route: 048
     Dates: start: 20130731
  2. REGORAFENIB [Suspect]
     Indication: COLON CANCER METASTATIC
     Dosage: UNK
     Route: 048
     Dates: start: 20131127, end: 20131207

REACTIONS (1)
  - Encephalopathy [Fatal]
